FAERS Safety Report 10458867 (Version 1)
Quarter: 2014Q3

REPORT INFORMATION
  Report Type: Spontaneous
  Country: AR (occurrence: AR)
  Receive Date: 20140917
  Receipt Date: 20140917
  Transmission Date: 20150326
  Serious: Yes (Other)
  Sender: FDA-Public Use
  Company Number: AR-UCBSA-2014011938

PATIENT
  Age: 63 Year
  Sex: Male

DRUGS (4)
  1. ENALAPRIL [Concomitant]
     Active Substance: ENALAPRIL
     Dosage: DOSE UNKNOWN
  2. KEPPRA [Suspect]
     Active Substance: LEVETIRACETAM
     Dosage: DAILY DOSE: 1500 MG
     Route: 048
     Dates: start: 2014
  3. TEMOZOLOMIDE [Concomitant]
     Active Substance: TEMOZOLOMIDE
     Dosage: DOSE UNKNOWN
  4. KEPPRA [Suspect]
     Active Substance: LEVETIRACETAM
     Indication: CONVULSION PROPHYLAXIS
     Dosage: DAILY DOSE: 1000 MG
     Route: 048
     Dates: start: 20130910, end: 2014

REACTIONS (6)
  - Brain operation [Recovered/Resolved]
  - Confusional state [Unknown]
  - Cough [Unknown]
  - Somnolence [Unknown]
  - Gait disturbance [Unknown]
  - Convulsion [Not Recovered/Not Resolved]

NARRATIVE: CASE EVENT DATE: 201406
